FAERS Safety Report 4590608-5 (Version None)
Quarter: 2005Q1

REPORT INFORMATION
  Report Type: 
  Country: None (occurrence: None)
  Receive Date: 20050222
  Receipt Date: 20050222
  Transmission Date: 20050727
  Serious: Yes (Other)
  Sender: FDA-Public Use
  Company Number: None

PATIENT
  Sex: Female
  Weight: 75.7507 kg

DRUGS (1)
  1. ORTHO TRI-CYCLEN [Suspect]
     Indication: CONTRACEPTION
     Dosage: 1 TABLET ORALLY DAILY
     Route: 048

REACTIONS (4)
  - GASTROINTESTINAL DISORDER [None]
  - MENSTRUATION IRREGULAR [None]
  - MIGRAINE [None]
  - URTICARIA [None]
